FAERS Safety Report 4416425-4 (Version None)
Quarter: 2004Q3

REPORT INFORMATION
  Report Type: 
  Country: None (occurrence: None)
  Receive Date: 20040802
  Receipt Date: 20040720
  Transmission Date: 20050211
  Serious: Yes (Hospitalization)
  Sender: FDA-Public Use
  Company Number: 04P-056-0267655-00

PATIENT
  Age: 78 Year
  Sex: Female

DRUGS (4)
  1. DEPAKOTE [Suspect]
     Dosage: 1000 MG, 1 IN 1 D, ORAL
     Route: 048
     Dates: start: 20040611, end: 20040621
  2. DONEPEZIL HCL [Concomitant]
  3. ZOFENOPRIL [Concomitant]
  4. MADOPAR [Concomitant]

REACTIONS (3)
  - ABNORMAL BEHAVIOUR [None]
  - AGGRESSION [None]
  - BRADYCARDIA [None]
